FAERS Safety Report 6890751-1 (Version None)
Quarter: 2010Q3

REPORT INFORMATION
  Report Type: 
  Country: None (occurrence: None)
  Receive Date: 20100731
  Receipt Date: 20090316
  Transmission Date: 20110219
  Serious: No
  Sender: FDA-Public Use
  Company Number: US-PFIZER INC-2009185118

PATIENT
  Sex: Female
  Weight: 61.234 kg

DRUGS (4)
  1. LIPITOR [Suspect]
     Indication: BLOOD CHOLESTEROL INCREASED
     Dosage: 20 MG, 1X/DAY
     Dates: start: 20070101
  2. PLAVIX [Concomitant]
     Dosage: UNK
  3. NEURONTIN [Concomitant]
     Dosage: UNK
  4. ACETYLSALICYLIC ACID [Concomitant]
     Dosage: UNK

REACTIONS (3)
  - GASTRITIS [None]
  - NAUSEA [None]
  - RASH [None]
